FAERS Safety Report 12557731 (Version 1)
Quarter: 2016Q3

REPORT INFORMATION
  Report Type: Spontaneous
  Country: US (occurrence: US)
  Receive Date: 20160714
  Receipt Date: 20160714
  Transmission Date: 20161109
  Serious: Yes (Other)
  Sender: FDA-Public Use
  Company Number: US-WATSON-2016-15210

PATIENT
  Age: 60 Year
  Sex: Female

DRUGS (3)
  1. TACROLIMUS (WATSON LABORATORIES) [Suspect]
     Active Substance: TACROLIMUS
     Indication: IMMUNOSUPPRESSANT DRUG THERAPY
     Dosage: UNK
     Route: 065
  2. AZATHIOPRINE (UNKNOWN) [Suspect]
     Active Substance: AZATHIOPRINE
     Indication: IMMUNOSUPPRESSANT DRUG THERAPY
     Dosage: UNK
     Route: 065
  3. PREDNISONE (WATSON LABORATORIES) [Suspect]
     Active Substance: PREDNISONE
     Indication: IMMUNOSUPPRESSANT DRUG THERAPY
     Dosage: UNK
     Route: 065

REACTIONS (2)
  - Diffuse large B-cell lymphoma [Not Recovered/Not Resolved]
  - Post transplant lymphoproliferative disorder [Not Recovered/Not Resolved]

NARRATIVE: CASE EVENT DATE: 201506
